FAERS Safety Report 8798730 (Version 2)
Quarter: 2012Q4

REPORT INFORMATION
  Report Type: 
  Country: JP (occurrence: JP)
  Receive Date: 20120920
  Receipt Date: 20121108
  Transmission Date: 20130627
  Serious: Yes (Hospitalization)
  Sender: FDA-Public Use
  Company Number: JP-ASTRAZENECA-2012SE60158

PATIENT
  Sex: Female
  Weight: 47 kg

DRUGS (18)
  1. FASLODEX [Suspect]
     Indication: BREAST CANCER
     Route: 030
     Dates: start: 20120322
  2. FASLODEX [Suspect]
     Indication: BREAST CANCER
     Route: 030
     Dates: start: 20120406
  3. FASLODEX [Suspect]
     Indication: BREAST CANCER
     Route: 030
     Dates: start: 20120420
  4. FASLODEX [Suspect]
     Indication: BREAST CANCER
     Route: 030
     Dates: start: 20120518
  5. FASLODEX [Suspect]
     Indication: BREAST CANCER
     Route: 030
     Dates: start: 20120615
  6. FASLODEX [Suspect]
     Indication: BREAST CANCER
     Route: 030
     Dates: start: 20120713
  7. YOKUKANSAN [Suspect]
     Indication: MIDDLE INSOMNIA
     Route: 048
     Dates: start: 20120712, end: 20120819
  8. YOKUKANSAN [Suspect]
     Indication: RESTLESSNESS
     Route: 048
     Dates: start: 20120712, end: 20120819
  9. BONALON [Concomitant]
     Route: 048
     Dates: start: 20090312
  10. MAGMITT [Concomitant]
     Route: 048
     Dates: start: 20090202
  11. LOXONIN [Concomitant]
     Route: 048
     Dates: start: 20120224
  12. FERROMIA [Concomitant]
     Route: 048
     Dates: start: 20120820
  13. MOHRUS TAPE L [Concomitant]
     Route: 062
     Dates: start: 20090312
  14. NOVAMIN [Concomitant]
     Route: 048
     Dates: start: 20120322
  15. SEROQUEL [Concomitant]
     Indication: MIDDLE INSOMNIA
     Route: 048
     Dates: start: 20120712, end: 20120819
  16. SEROQUEL [Concomitant]
     Indication: RESTLESSNESS
     Route: 048
     Dates: start: 20120712, end: 20120819
  17. FENTOS [Concomitant]
     Route: 062
     Dates: start: 20120731
  18. FEMARA [Concomitant]
     Dates: start: 20090312, end: 20120311

REACTIONS (1)
  - Interstitial lung disease [Recovering/Resolving]
